FAERS Safety Report 6852318-0 (Version None)
Quarter: 2010Q3

REPORT INFORMATION
  Report Type: 
  Country: None (occurrence: None)
  Receive Date: 20100717
  Receipt Date: 20071107
  Transmission Date: 20110219
  Serious: No
  Sender: FDA-Public Use
  Company Number: US-PFIZER INC-2007096294

PATIENT
  Sex: Female
  Weight: 81.818 kg

DRUGS (2)
  1. CHANTIX [Suspect]
     Indication: SMOKING CESSATION THERAPY
     Route: 048
     Dates: start: 20071105
  2. ACETYLSALICYLIC ACID [Concomitant]

REACTIONS (4)
  - DRUG DEPENDENCE [None]
  - SEDATION [None]
  - THINKING ABNORMAL [None]
  - VISION BLURRED [None]
